FAERS Safety Report 4563060-3 (Version None)
Quarter: 2005Q1

REPORT INFORMATION
  Report Type: 
  Country: None (occurrence: None)
  Receive Date: 20050125
  Receipt Date: 20050112
  Transmission Date: 20050727
  Serious: Yes (Other)
  Sender: FDA-Public Use
  Company Number: HQWYE604012JAN05

PATIENT
  Age: 25 Year
  Sex: Female

DRUGS (6)
  1. INDERAL (PROPANOLOL HYDROCHLORIDE, TABLET) [Suspect]
     Dosage: 40 MG
     Route: 048
  2. CLONAZEPAM [Suspect]
     Dosage: 250 MG
     Route: 048
  3. GABAPENTIN [Suspect]
     Dosage: 800 MG
     Route: 048
  4. SERTRALINE HCL [Suspect]
     Dosage: 100 MG 1X PER 1 DAY
  5. TOLTERODINE (TOLTERODINE) [Suspect]
     Dosage: 2 MG 1X PER 1 DAY
     Route: 048
  6. ZOPICLONE (ZOPICLONE) [Suspect]
     Dosage: 1 MG 2X PER 1 DAY
     Route: 048

REACTIONS (3)
  - ABORTION SPONTANEOUS [None]
  - DRUG EXPOSURE DURING PREGNANCY [None]
  - PREGNANCY [None]
